FAERS Safety Report 15868239 (Version 1)
Quarter: 2019Q1

REPORT INFORMATION
  Report Type: Spontaneous
  Country: US (occurrence: US)
  Receive Date: 20190125
  Receipt Date: 20190125
  Transmission Date: 20190417
  Serious: Yes (Hospitalization)
  Sender: FDA-Public Use
  Company Number: None

PATIENT
  Sex: Male

DRUGS (4)
  1. OXYCODONE AND ACETAMINOPHEN [Concomitant]
     Active Substance: ACETAMINOPHEN\OXYCODONE HYDROCHLORIDE
  2. BACLOFEN. [Concomitant]
     Active Substance: BACLOFEN
  3. METHOTREXATE. [Concomitant]
     Active Substance: METHOTREXATE
  4. SIMPONI [Suspect]
     Active Substance: GOLIMUMAB
     Indication: CROHN^S DISEASE
     Dosage: ?          OTHER FREQUENCY:Q28D;?
     Route: 058
     Dates: start: 20181030

REACTIONS (8)
  - Intestinal obstruction [None]
  - Paraesthesia [None]
  - Pneumonia [None]
  - Gait disturbance [None]
  - Hypoaesthesia [None]
  - Sepsis [None]
  - Muscle spasms [None]
  - Pain in extremity [None]
